FAERS Safety Report 5707055-2 (Version None)
Quarter: 2008Q2

REPORT INFORMATION
  Report Type: 
  Country: None (occurrence: None)
  Receive Date: 20080416
  Receipt Date: 20080410
  Transmission Date: 20081010
  Serious: Yes (Life-Threatening)
  Sender: FDA-Public Use
  Company Number: B0515535A

PATIENT
  Age: 16 Day
  Sex: Male

DRUGS (2)
  1. LAMICTAL [Suspect]
     Indication: DRUG USE FOR UNKNOWN INDICATION
     Dosage: 875MG PER DAY
     Dates: start: 20070801, end: 20080303
  2. LAMICTAL [Suspect]
     Dosage: 875MG PER DAY
     Dates: start: 20080303, end: 20080320

REACTIONS (13)
  - APNOEIC ATTACK [None]
  - CYANOSIS [None]
  - DRUG EXPOSURE DURING PREGNANCY [None]
  - DRUG EXPOSURE VIA BREAST MILK [None]
  - DYSPNOEA [None]
  - FATIGUE [None]
  - HEART RATE IRREGULAR [None]
  - LISTLESS [None]
  - PULMONARY VALVE STENOSIS [None]
  - RESPIRATORY RATE INCREASED [None]
  - SOMNOLENCE [None]
  - TACHYCARDIA [None]
  - TACHYPNOEA [None]
